FAERS Safety Report 4854993-9 (Version None)
Quarter: 2005Q4

REPORT INFORMATION
  Report Type: 
  Country: None (occurrence: None)
  Receive Date: 20051214
  Receipt Date: 20051128
  Transmission Date: 20060501
  Serious: Yes (Hospitalization)
  Sender: FDA-Public Use
  Company Number: 190001L05FRA

PATIENT
  Age: 36 Year
  Sex: Female

DRUGS (2)
  1. MENOTROPHIN (MENOTROPHIN) [Suspect]
     Indication: OVARIAN HYPERSTIMULATION SYNDROME
  2. CHORIONIC GONADOTROPIN (CHORIONIC GONADOTROPHIN) [Suspect]
     Indication: OVARIAN HYPERSTIMULATION SYNDROME

REACTIONS (7)
  - CAESAREAN SECTION [None]
  - CYST [None]
  - DRUG EXPOSURE DURING PREGNANCY [None]
  - HYPERCOAGULATION [None]
  - JOINT RANGE OF MOTION DECREASED [None]
  - OSTEONECROSIS [None]
  - VENOUS OCCLUSION [None]
